FAERS Safety Report 21196218 (Version 4)
Quarter: 2024Q1

REPORT INFORMATION
  Report Type: Other
  Country: DE (occurrence: DE)
  Receive Date: 20220810
  Receipt Date: 20240308
  Transmission Date: 20240410
  Serious: Yes (Other)
  Sender: FDA-Public Use
  Company Number: DE-ROCHE-2398297

PATIENT
  Age: 44 Year
  Sex: Female

DRUGS (7)
  1. OCREVUS [Suspect]
     Active Substance: OCRELIZUMAB
     Indication: Primary progressive multiple sclerosis
     Dosage: SUBSEQUENT DOSES OF OCRELIZUMAB: 13/AUG/2019, ALSO TAKEN 600 MG ON 30/JUL/2019 (FREQUENCY: 182 DAYS)
     Route: 042
     Dates: start: 20190730
  2. OCREVUS [Suspect]
     Active Substance: OCRELIZUMAB
     Indication: Relapsing-remitting multiple sclerosis
     Dosage: SUBSEQUENT DOSES OF OCRELIZUMAB: 14/JUL/2020, 12/JAN/2021
     Route: 042
     Dates: start: 20200121
  3. OCREVUS [Suspect]
     Active Substance: OCRELIZUMAB
     Route: 042
     Dates: start: 202107, end: 202107
  4. COMIRNATY (TOZINAMERAN) [Suspect]
     Active Substance: TOZINAMERAN
     Indication: Immunisation
     Route: 065
     Dates: start: 20210415, end: 20210415
  5. COMIRNATY (TOZINAMERAN) [Suspect]
     Active Substance: TOZINAMERAN
     Indication: COVID-19
  6. SODIUM CHLORIDE [Concomitant]
     Active Substance: SODIUM CHLORIDE
     Route: 042
  7. IBUPROFEN [Concomitant]
     Active Substance: IBUPROFEN

REACTIONS (29)
  - Cardiovascular insufficiency [Recovered/Resolved]
  - Nausea [Recovered/Resolved]
  - Dyspnoea [Recovered/Resolved]
  - Feeling cold [Unknown]
  - Hypoaesthesia oral [Recovered/Resolved]
  - Gastroenteritis [Unknown]
  - Food intolerance [Recovered/Resolved]
  - Product administration error [Unknown]
  - Chest discomfort [Recovered/Resolved]
  - Sleep disorder [Recovering/Resolving]
  - Urinary tract infection [Recovered/Resolved]
  - Headache [Recovered/Resolved]
  - Alopecia [Recovered/Resolved]
  - Diarrhoea [Recovered/Resolved]
  - Vein disorder [Unknown]
  - Neck pain [Recovered/Resolved]
  - Paravenous drug administration [Unknown]
  - Feeling hot [Recovered/Resolved]
  - Tooth extraction [Recovered/Resolved]
  - Gastrointestinal disorder [Not Recovered/Not Resolved]
  - Dizziness [Recovered/Resolved]
  - Tension [Recovered/Resolved]
  - Nasopharyngitis [Recovered/Resolved]
  - Enteritis [Recovered/Resolved]
  - Fatigue [Recovered/Resolved]
  - Malaise [Recovered/Resolved]
  - Decreased appetite [Recovered/Resolved]
  - COVID-19 [Recovered/Resolved]
  - Arthralgia [Not Recovered/Not Resolved]

NARRATIVE: CASE EVENT DATE: 20190813
